FAERS Safety Report 8769378 (Version 1)
Quarter: 2012Q4

REPORT INFORMATION
  Report Type: 
  Country: US (occurrence: US)
  Receive Date: 20120905
  Receipt Date: 20120905
  Transmission Date: 20130627
  Serious: Yes (Hospitalization)
  Sender: FDA-Public Use
  Company Number: US-MYLANLABS-2012S1017585

PATIENT
  Age: 27 Year
  Sex: Male

DRUGS (1)
  1. QUETIAPINE [Suspect]
     Indication: OVERDOSE
     Dosage: unknown amount
     Route: 065

REACTIONS (6)
  - Overdose [Recovered/Resolved]
  - Mental status changes [Recovered/Resolved]
  - Feeling hot [Recovered/Resolved]
  - Flushing [Recovered/Resolved]
  - Miosis [Recovered/Resolved]
  - Dry skin [Recovered/Resolved]
